FAERS Safety Report 8773750 (Version 1)
Quarter: 2012Q4

REPORT INFORMATION
  Report Type: 
  Country: BE (occurrence: BE)
  Receive Date: 20120907
  Receipt Date: 20120907
  Transmission Date: 20130627
  Serious: Yes (Other)
  Sender: FDA-Public Use
  Company Number: BE-PFIZER INC-2012205517

PATIENT
  Age: 15 Year
  Sex: Male
  Weight: 54 kg

DRUGS (2)
  1. GENOTONORM [Suspect]
     Indication: GROWTH HORMONE DEFICIENCY
     Dosage: 2.4 mg, 1x/day
     Route: 058
     Dates: start: 20100818
  2. D-CURE [Concomitant]
     Dosage: 1 DF, weekly
     Route: 048
     Dates: start: 20111118

REACTIONS (2)
  - Blood creatine phosphokinase increased [Unknown]
  - Myalgia [Unknown]
